FAERS Safety Report 7883432-9 (Version None)
Quarter: 2011Q4

REPORT INFORMATION
  Report Type: 
  Country: None (occurrence: None)
  Receive Date: 20111102
  Receipt Date: 20111020
  Transmission Date: 20120403
  Serious: Yes (Other)
  Sender: FDA-Public Use
  Company Number: AR-AMGEN-ARGSP2011011484

PATIENT
  Age: 56 Year
  Sex: Female
  Weight: 60 kg

DRUGS (3)
  1. ENBREL [Suspect]
     Indication: RHEUMATOID ARTHRITIS
     Dosage: 25 MG, 2X/WEEK
     Route: 058
     Dates: start: 20070713, end: 20101201
  2. CALCIUM [Concomitant]
     Dosage: UNK
     Route: 065
  3. METHOTREXATE SODIUM [Concomitant]
     Dosage: UNK
     Route: 065

REACTIONS (5)
  - NEPHROLITHIASIS [None]
  - PNEUMONIA [None]
  - TUBERCULOSIS [None]
  - URINARY TRACT INFECTION [None]
  - GALLBLADDER DISORDER [None]
